FAERS Safety Report 12802677 (Version 1)
Quarter: 2016Q4

REPORT INFORMATION
  Report Type: Spontaneous
  Country: AU (occurrence: AU)
  Receive Date: 20161003
  Receipt Date: 20161003
  Transmission Date: 20170207
  Serious: Yes (Other)
  Sender: FDA-Public Use
  Company Number: AU-PFIZER INC-2016456318

PATIENT
  Age: 71 Year
  Sex: Male
  Weight: 180 kg

DRUGS (4)
  1. GENTAMICIN SULFATE. [Suspect]
     Active Substance: GENTAMICIN SULFATE
     Dosage: UNK
  2. GENTAMICIN SULFATE. [Suspect]
     Active Substance: GENTAMICIN SULFATE
     Indication: ARTHRITIS BACTERIAL
     Dosage: 750 MG, UNK
     Dates: start: 20160920
  3. FLUCLOXACILLIN [Concomitant]
     Active Substance: FLUCLOXACILLIN
     Dosage: 2 G, UNK
  4. VANCOMYCIN [Concomitant]
     Active Substance: VANCOMYCIN
     Dosage: 1.5 G, UNK

REACTIONS (5)
  - Acute kidney injury [Unknown]
  - Product label confusion [Unknown]
  - Medication error [Unknown]
  - Renal impairment [Unknown]
  - Overdose [Unknown]
